FAERS Safety Report 14842958 (Version 1)
Quarter: 2018Q2

REPORT INFORMATION
  Report Type: Spontaneous
  Country: US (occurrence: US)
  Receive Date: 20180503
  Receipt Date: 20180503
  Transmission Date: 20180711
  Serious: No
  Sender: FDA-Public Use
  Company Number: US-TEVA-2018-US-886978

PATIENT
  Sex: Male
  Weight: 110.1 kg

DRUGS (9)
  1. OXYBUTYNIN. [Suspect]
     Active Substance: OXYBUTYNIN CHLORIDE
     Route: 065
  2. OXYCODONE [Concomitant]
     Active Substance: OXYCODONE
  3. TAMSULOSIN [Concomitant]
     Active Substance: TAMSULOSIN
  4. NOVOLOG [Concomitant]
     Active Substance: INSULIN ASPART
  5. MIRABEGRON [Concomitant]
     Active Substance: MIRABEGRON
  6. SIMVASTATIN. [Concomitant]
     Active Substance: SIMVASTATIN
  7. TYLENOL [Concomitant]
     Active Substance: ACETAMINOPHEN
  8. BISACODYL. [Concomitant]
     Active Substance: BISACODYL
  9. PERI-COLACE [Concomitant]
     Active Substance: CASANTHRANOL\DOCUSATE SODIUM

REACTIONS (1)
  - Drug hypersensitivity [Unknown]
